FAERS Safety Report 7150034-1 (Version None)
Quarter: 2010Q4

REPORT INFORMATION
  Report Type: 
  Country: None (occurrence: None)
  Receive Date: 20101210
  Receipt Date: 20101201
  Transmission Date: 20110411
  Serious: Yes (Other)
  Sender: FDA-Public Use
  Company Number: US-PFIZER INC-2010136263

PATIENT
  Sex: Female
  Weight: 68.934 kg

DRUGS (2)
  1. XALATAN [Suspect]
     Indication: INTRAOCULAR PRESSURE INCREASED
     Dosage: UNK
     Route: 047
     Dates: start: 20100401
  2. FLAGYL [Suspect]
     Dosage: UNK

REACTIONS (4)
  - PARAESTHESIA ORAL [None]
  - PRURITUS [None]
  - SINUS DISORDER [None]
  - SWOLLEN TONGUE [None]
